FAERS Safety Report 21344254 (Version 1)
Quarter: 2022Q3

REPORT INFORMATION
  Report Type: Spontaneous
  Country: DE (occurrence: None)
  Receive Date: 20220916
  Receipt Date: 20220916
  Transmission Date: 20221027
  Serious: Yes (Other)
  Sender: FDA-Public Use
  Company Number: 2022A312698

PATIENT
  Sex: Female
  Weight: 67 kg

DRUGS (1)
  1. QUETIAPINE [Suspect]
     Active Substance: QUETIAPINE
     Indication: Schizoaffective disorder
     Dosage: 400 [MG/D ]
     Route: 048
     Dates: start: 20210218, end: 20210722

REACTIONS (2)
  - Gestational diabetes [Unknown]
  - Maternal exposure during pregnancy [Unknown]
